FAERS Safety Report 5315060-3 (Version None)
Quarter: 2007Q2

REPORT INFORMATION
  Report Type: 
  Country: None (occurrence: None)
  Receive Date: 20070502
  Receipt Date: 20070423
  Transmission Date: 20071010
  Serious: Yes (Life-Threatening, Hospitalization)
  Sender: FDA-Public Use
  Company Number: ES-GILEAD-2007-0011926

PATIENT
  Age: 74 Year
  Sex: Male

DRUGS (3)
  1. TRUVADA [Suspect]
     Route: 048
     Dates: end: 20060602
  2. KALETRA [Suspect]
     Route: 048
     Dates: start: 20060501, end: 20060602
  3. SEPTRA [Concomitant]
     Route: 048

REACTIONS (2)
  - KIDNEY FIBROSIS [None]
  - RENAL FAILURE ACUTE [None]
